FAERS Safety Report 5396767-9 (Version None)
Quarter: 2007Q3

REPORT INFORMATION
  Report Type: 
  Country: None (occurrence: None)
  Receive Date: 20070725
  Receipt Date: 20070711
  Transmission Date: 20080115
  Serious: Yes (Other)
  Sender: FDA-Public Use
  Company Number: FR-ELI_LILLY_AND_COMPANY-FR200707003575

PATIENT
  Sex: Female

DRUGS (2)
  1. OPTRUMA [Suspect]
     Indication: OSTEOPOROSIS
     Dosage: 60 MG, DAILY (1/D)
     Route: 048
     Dates: start: 20070401, end: 20070704
  2. IODINE [Concomitant]
     Indication: THYROID DISORDER

REACTIONS (1)
  - AUTOIMMUNE THYROIDITIS [None]
